FAERS Safety Report 17237827 (Version 6)
Quarter: 2020Q4

REPORT INFORMATION
  Report Type: Report from Study
  Country: US (occurrence: US)
  Receive Date: 20200106
  Receipt Date: 20201124
  Transmission Date: 20210113
  Serious: Yes (Other)
  Sender: FDA-Public Use
  Company Number: NVSC2020US000634

PATIENT
  Age: 75 Year
  Sex: Male

DRUGS (6)
  1. ENTRESTO [Suspect]
     Active Substance: SACUBITRIL\VALSARTAN
     Indication: CARDIAC FAILURE CHRONIC
     Dosage: 1 DF, BID (SACUBITRIL 24 MG/VALSARTAN 26 MG)
     Route: 065
     Dates: start: 201909
  2. ENTRESTO [Suspect]
     Active Substance: SACUBITRIL\VALSARTAN
     Dosage: 1 DF, BID (SACUBITRIL 24 MG/VALSARTAN 26 MG)
     Route: 065
  3. ENTRESTO [Suspect]
     Active Substance: SACUBITRIL\VALSARTAN
     Dosage: 100 MG, BID (49/51MG)
     Route: 048
     Dates: start: 20200811
  4. METFORMIN [Suspect]
     Active Substance: METFORMIN HYDROCHLORIDE
     Indication: PRODUCT USED FOR UNKNOWN INDICATION
     Dosage: UNK
     Route: 065
     Dates: start: 2006
  5. ENTRESTO [Suspect]
     Active Substance: SACUBITRIL\VALSARTAN
     Dosage: 1 DF, BID (SACUBITRIL 49 MG/VALSARTAN 51 MG)
     Route: 065
  6. METOPROLOL. [Suspect]
     Active Substance: METOPROLOL
     Indication: PRODUCT USED FOR UNKNOWN INDICATION
     Dosage: UNK
     Route: 065

REACTIONS (28)
  - White blood cell count decreased [Unknown]
  - Dizziness [Recovering/Resolving]
  - Polyp [Unknown]
  - Dehydration [Unknown]
  - Hypersomnia [Unknown]
  - Adrenal gland cancer [Unknown]
  - Vision blurred [Unknown]
  - Heart rate increased [Recovering/Resolving]
  - Herpes zoster [Not Recovered/Not Resolved]
  - Red blood cell count decreased [Unknown]
  - Diarrhoea [Unknown]
  - Tachycardia [Recovering/Resolving]
  - Full blood count decreased [Recovering/Resolving]
  - Alopecia [Unknown]
  - Blood glucose fluctuation [Recovering/Resolving]
  - Syncope [Recovering/Resolving]
  - Fall [Recovering/Resolving]
  - Paraesthesia [Recovering/Resolving]
  - Asthenia [Unknown]
  - Loss of consciousness [Recovering/Resolving]
  - Renal failure [Unknown]
  - Wrong technique in product usage process [Unknown]
  - Lymphoma [Unknown]
  - Blood sodium decreased [Unknown]
  - Decreased appetite [Unknown]
  - Hypotension [Recovering/Resolving]
  - Diverticulitis [Unknown]
  - Atrophy [Unknown]

NARRATIVE: CASE EVENT DATE: 201911
